FAERS Safety Report 16305002 (Version 8)
Quarter: 2025Q1

REPORT INFORMATION
  Report Type: Report from Study
  Country: CA (occurrence: CA)
  Receive Date: 20190513
  Receipt Date: 20250220
  Transmission Date: 20250409
  Serious: Yes (Hospitalization, Other)
  Sender: PFIZER
  Company Number: CA-TAKEDA-2018TUS005288

PATIENT
  Age: 68 Year
  Sex: Male

DRUGS (16)
  1. PANTOPRAZOLE SODIUM [Suspect]
     Active Substance: PANTOPRAZOLE SODIUM
     Indication: Gastrooesophageal reflux disease
     Route: 065
  2. ENTYVIO [Suspect]
     Active Substance: VEDOLIZUMAB
     Indication: Crohn^s disease
     Route: 042
     Dates: start: 20180222
  3. ENTYVIO [Suspect]
     Active Substance: VEDOLIZUMAB
     Route: 042
  4. ENTYVIO [Suspect]
     Active Substance: VEDOLIZUMAB
     Route: 042
  5. ENTYVIO [Suspect]
     Active Substance: VEDOLIZUMAB
     Route: 042
  6. ENTYVIO [Suspect]
     Active Substance: VEDOLIZUMAB
     Route: 042
  7. ENTYVIO [Suspect]
     Active Substance: VEDOLIZUMAB
     Route: 042
  8. ENTYVIO [Suspect]
     Active Substance: VEDOLIZUMAB
     Route: 042
  9. CARBAMAZEPINE [Concomitant]
     Active Substance: CARBAMAZEPINE
  10. PHENOBARBITAL [Concomitant]
     Active Substance: PHENOBARBITAL
  11. ALFUZOSIN [Concomitant]
     Active Substance: ALFUZOSIN
  12. PROSCAR [Concomitant]
     Active Substance: FINASTERIDE
  13. COLACE [Concomitant]
     Active Substance: DOCUSATE SODIUM
  14. VENTOLIN [Concomitant]
     Active Substance: ALBUTEROL SULFATE
     Indication: Asthma
  15. TYLENOL [Concomitant]
     Active Substance: ACETAMINOPHEN
     Indication: Arthritis
  16. LACTULOSE [Concomitant]
     Active Substance: LACTULOSE

REACTIONS (14)
  - Intestinal obstruction [Recovered/Resolved]
  - Crohn^s disease [Recovering/Resolving]
  - Condition aggravated [Recovering/Resolving]
  - Diarrhoea [Unknown]
  - Faecal volume decreased [Unknown]
  - Abdominal discomfort [Not Recovered/Not Resolved]
  - Dysgeusia [Recovering/Resolving]
  - Decreased appetite [Not Recovered/Not Resolved]
  - Neck pain [Not Recovered/Not Resolved]
  - Constipation [Unknown]
  - Flatulence [Not Recovered/Not Resolved]
  - Abdominal distension [Not Recovered/Not Resolved]
  - Asthenia [Not Recovered/Not Resolved]
  - Nausea [Unknown]

NARRATIVE: CASE EVENT DATE: 20180101
